FAERS Safety Report 7122151-3 (Version None)
Quarter: 2010Q4

REPORT INFORMATION
  Report Type: 
  Country: None (occurrence: None)
  Receive Date: 20101124
  Receipt Date: 20101115
  Transmission Date: 20110411
  Serious: Yes (Other)
  Sender: FDA-Public Use
  Company Number: US-BRISTOL-MYERS SQUIBB COMPANY-13916184

PATIENT
  Age: 14 Year
  Sex: Male
  Weight: 117 kg

DRUGS (4)
  1. ATAZANAVIR [Suspect]
     Indication: HIV INFECTION
     Dosage: 24FEB2006,82WEEKS
     Route: 048
     Dates: start: 20060223, end: 20070920
  2. STAVUDINE [Suspect]
     Indication: HIV INFECTION
     Dosage: 24FEB2006,82WEEKS
     Route: 048
     Dates: start: 20060223, end: 20070920
  3. RITONAVIR [Suspect]
     Indication: HIV INFECTION
     Dosage: 24FEB2006,82WEEKS
     Route: 048
     Dates: start: 20060223, end: 20070920
  4. EMTRICITABINE [Suspect]
     Indication: HIV INFECTION
     Dosage: 24FEB2006,82WEEKS
     Route: 048
     Dates: start: 20060223, end: 20070920

REACTIONS (1)
  - BLOOD BILIRUBIN UNCONJUGATED INCREASED [None]
